FAERS Safety Report 7794031-1 (Version None)
Quarter: 2011Q4

REPORT INFORMATION
  Report Type: 
  Country: None (occurrence: None)
  Receive Date: 20111004
  Receipt Date: 20110923
  Transmission Date: 20120403
  Serious: No
  Sender: FDA-Public Use
  Company Number: US-BIOGENIDEC-2011BI036675

PATIENT
  Age: 57 Year
  Sex: Male

DRUGS (1)
  1. AVONEX [Suspect]
     Indication: MULTIPLE SCLEROSIS
     Route: 030
     Dates: start: 20110923

REACTIONS (6)
  - TREMOR [None]
  - DYSPNOEA [None]
  - CHEST PAIN [None]
  - CHILLS [None]
  - PAIN [None]
  - PYREXIA [None]
